FAERS Safety Report 10777966 (Version 2)
Quarter: 2020Q1

REPORT INFORMATION
  Report Type: Spontaneous
  Country: US (occurrence: US)
  Receive Date: 20150209
  Receipt Date: 20200116
  Transmission Date: 20200409
  Serious: No
  Sender: FDA-Public Use
  Company Number: US-AMGEN-USASP2014024277

PATIENT
  Sex: Female

DRUGS (25)
  1. HERCEPTIN [Suspect]
     Active Substance: TRASTUZUMAB
     Dosage: 143 MILLIGRAM
     Route: 041
     Dates: start: 20121211
  2. HERCEPTIN [Suspect]
     Active Substance: TRASTUZUMAB
     Dosage: 438 MILLIGRAM
     Route: 041
     Dates: start: 20130226
  3. HERCEPTIN [Suspect]
     Active Substance: TRASTUZUMAB
     Indication: BREAST CANCER FEMALE
     Dosage: 287 MILLIGRAM
     Route: 042
     Dates: start: 20121113
  4. HERCEPTIN [Suspect]
     Active Substance: TRASTUZUMAB
     Dosage: 143 MILLIGRAM
     Route: 041
     Dates: start: 20121127
  5. HERCEPTIN [Suspect]
     Active Substance: TRASTUZUMAB
     Dosage: 143 MILLIGRAM
     Route: 041
     Dates: start: 20121204
  6. HERCEPTIN [Suspect]
     Active Substance: TRASTUZUMAB
     Dosage: 143 MILLIGRAM
     Route: 041
     Dates: start: 20121218
  7. HERCEPTIN [Suspect]
     Active Substance: TRASTUZUMAB
     Dosage: 438 MILLIGRAM
     Route: 041
     Dates: start: 20130430
  8. PERJETA [Suspect]
     Active Substance: PERTUZUMAB
     Indication: BREAST CANCER FEMALE
     Dosage: UNK
     Route: 065
     Dates: start: 20190917
  9. PERJETA [Suspect]
     Active Substance: PERTUZUMAB
     Dosage: UNK
     Route: 065
     Dates: start: 20191008
  10. DECADRON [Concomitant]
     Active Substance: DEXAMETHASONE
     Dosage: 8 MILLIGRAM
     Route: 048
  11. NEULASTA [Suspect]
     Active Substance: PEGFILGRASTIM
     Indication: BREAST CANCER FEMALE
     Dosage: 6 MILLIGRAM
     Route: 058
     Dates: start: 20121010
  12. HERCEPTIN [Suspect]
     Active Substance: TRASTUZUMAB
     Dosage: 143 MILLIGRAM
     Route: 041
     Dates: start: 20121227
  13. HERCEPTIN [Suspect]
     Active Substance: TRASTUZUMAB
     Dosage: 143 MILLILITER
     Route: 041
     Dates: start: 20130110
  14. HERCEPTIN [Suspect]
     Active Substance: TRASTUZUMAB
     Dosage: 438 MILLIGRAM
     Route: 041
     Dates: start: 20130205
  15. HERCEPTIN [Suspect]
     Active Substance: TRASTUZUMAB
     Dosage: 438 MILLIGRAM
     Route: 041
     Dates: start: 20130319
  16. TAXOL [Concomitant]
     Active Substance: PACLITAXEL
     Dosage: 130 MILLIGRAM
     Route: 042
     Dates: start: 20130110
  17. TYLENOL [Concomitant]
     Active Substance: ACETAMINOPHEN
     Dosage: 650 MILLIGRAM
     Route: 048
  18. FAMOTIDINE. [Concomitant]
     Active Substance: FAMOTIDINE
     Dosage: 20 MILLIGRAM
     Route: 042
  19. HEPARIN [Concomitant]
     Active Substance: HEPARIN SODIUM
     Dosage: 500 UNITS
     Route: 042
     Dates: start: 20121120
  20. HERCEPTIN [Suspect]
     Active Substance: TRASTUZUMAB
     Dosage: 143 MILLIGRAM
     Route: 041
     Dates: start: 20121120
  21. ALOXI [Concomitant]
     Active Substance: PALONOSETRON HYDROCHLORIDE
     Dosage: 250 MICROGRAM
     Route: 042
  22. HERCEPTIN [Suspect]
     Active Substance: TRASTUZUMAB
     Dosage: 438 MILLIGRAM
     Route: 041
     Dates: start: 20130409
  23. HERCEPTIN [Suspect]
     Active Substance: TRASTUZUMAB
     Dosage: 432 MILLIGRAM
     Route: 041
     Dates: start: 20131105
  24. BENADRYL [Concomitant]
     Active Substance: DIPHENHYDRAMINE HYDROCHLORIDE
     Dosage: 50 MILLIGRAM
     Route: 048
  25. HERCEPTIN [Suspect]
     Active Substance: TRASTUZUMAB
     Dosage: 143 MILLILITER
     Route: 041
     Dates: start: 20130103

REACTIONS (1)
  - Alopecia [Unknown]
